FAERS Safety Report 15279009 (Version 2)
Quarter: 2018Q3

REPORT INFORMATION
  Report Type: Spontaneous
  Country: FR (occurrence: FR)
  Receive Date: 20180815
  Receipt Date: 20180919
  Transmission Date: 20181010
  Serious: Yes (Hospitalization)
  Sender: FDA-Public Use
  Company Number: FR-B.I. PHARMACEUTICALS,INC./RIDGEFIELD-2018-BI-040483

PATIENT
  Age: 73 Year
  Sex: Female
  Weight: 74 kg

DRUGS (7)
  1. LEXOMIL [Concomitant]
     Active Substance: BROMAZEPAM
     Indication: PRODUCT USED FOR UNKNOWN INDICATION
     Route: 065
  2. TENORMINE [Concomitant]
     Active Substance: ATENOLOL
     Indication: PRODUCT USED FOR UNKNOWN INDICATION
     Dosage: 50
     Route: 065
  3. GILOTRIF [Suspect]
     Active Substance: AFATINIB
     Route: 065
  4. GILOTRIF [Suspect]
     Active Substance: AFATINIB
     Route: 065
     Dates: start: 201806, end: 201806
  5. GILOTRIF [Suspect]
     Active Substance: AFATINIB
     Route: 065
     Dates: start: 201807
  6. KARDEGIC [Concomitant]
     Active Substance: ASPIRIN DL-LYSINE
     Indication: PRODUCT USED FOR UNKNOWN INDICATION
     Route: 065
  7. GILOTRIF [Suspect]
     Active Substance: AFATINIB
     Indication: MEDIASTINUM NEOPLASM
     Route: 065
     Dates: start: 201709

REACTIONS (15)
  - Diarrhoea [Recovered/Resolved]
  - Fungal infection [Recovering/Resolving]
  - Mouth ulceration [Recovered/Resolved]
  - Fatigue [Not Recovered/Not Resolved]
  - Thrombosis [Recovered/Resolved]
  - Hot flush [Not Recovered/Not Resolved]
  - Nail disorder [Not Recovered/Not Resolved]
  - Bone lesion [Not Recovered/Not Resolved]
  - Onychoclasis [Not Recovered/Not Resolved]
  - Cystitis [Recovering/Resolving]
  - Abdominal pain [Not Recovered/Not Resolved]
  - Erythema [Not Recovered/Not Resolved]
  - Decreased appetite [Unknown]
  - Weight decreased [Unknown]
  - Musculoskeletal pain [Not Recovered/Not Resolved]

NARRATIVE: CASE EVENT DATE: 201709
